FAERS Safety Report 5840092-6 (Version None)
Quarter: 2008Q3

REPORT INFORMATION
  Report Type: 
  Country: None (occurrence: None)
  Receive Date: 20080811
  Receipt Date: 20080804
  Transmission Date: 20090109
  Serious: Yes (Hospitalization)
  Sender: FDA-Public Use
  Company Number: B0528604A

PATIENT
  Age: 24 Year
  Sex: Male

DRUGS (6)
  1. ULTIVA [Suspect]
     Indication: ANALGESIC THERAPY
     Dosage: 2MG PER DAY
     Dates: start: 20080613, end: 20080613
  2. CEFAZOLIN SODIUM [Suspect]
     Indication: INFECTION PROPHYLAXIS
     Dosage: 2G PER DAY
     Route: 042
     Dates: start: 20080613, end: 20080614
  3. THIOPENTAL SODIUM [Concomitant]
     Dosage: .3G SINGLE DOSE
     Route: 065
  4. VECURONIUM BROMIDE [Concomitant]
     Dosage: 10MG PER DAY
     Route: 065
  5. NEOSTIGMINE BROMIDE [Concomitant]
     Dosage: .5MG PER DAY
     Route: 065
  6. ATROPINE SULFATE [Concomitant]
     Dosage: .5MG PER DAY
     Route: 065

REACTIONS (3)
  - BLISTER [None]
  - ERYTHEMA MULTIFORME [None]
  - TOXIC SKIN ERUPTION [None]
